FAERS Safety Report 8934069 (Version 1)
Quarter: 2012Q4

REPORT INFORMATION
  Report Type: 
  Country: US (occurrence: US)
  Receive Date: 20121129
  Receipt Date: 20121129
  Transmission Date: 20130627
  Serious: No
  Sender: FDA-Public Use
  Company Number: US-GLAXOSMITHKLINE-A0942525A

PATIENT
  Age: 35 Year
  Sex: Male

DRUGS (4)
  1. WELLBUTRIN SR [Suspect]
     Indication: DEPRESSION
     Route: 048
     Dates: start: 201102, end: 201102
  2. PROZAC [Concomitant]
  3. ABILIFY [Concomitant]
  4. XANAX [Concomitant]

REACTIONS (1)
  - Dizziness [Recovered/Resolved]
